FAERS Safety Report 15880448 (Version 2)
Quarter: 2020Q4

REPORT INFORMATION
  Report Type: Report from Study
  Country: GB (occurrence: GB)
  Receive Date: 20190128
  Receipt Date: 20201125
  Transmission Date: 20210113
  Serious: Yes (Hospitalization)
  Sender: FDA-Public Use
  Company Number: GB-JNJFOC-20181208803

PATIENT
  Age: 48 Year
  Sex: Female

DRUGS (6)
  1. VITAMIN D [Concomitant]
     Active Substance: VITAMIN D NOS
  2. PREDNISOLONE. [Concomitant]
     Active Substance: PREDNISOLONE
  3. STELARA [Suspect]
     Active Substance: USTEKINUMAB
  4. TRAMADOL. [Concomitant]
     Active Substance: TRAMADOL
     Route: 065
  5. STELARA [Suspect]
     Active Substance: USTEKINUMAB
     Indication: INFLAMMATORY BOWEL DISEASE
     Route: 058
     Dates: start: 201707
  6. LANSOPRAZOLE. [Concomitant]
     Active Substance: LANSOPRAZOLE

REACTIONS (6)
  - Ankylosing spondylitis [Unknown]
  - Pneumonia [Unknown]
  - Neutropenia [Unknown]
  - Therapeutic response decreased [Unknown]
  - Inflammatory bowel disease [Unknown]
  - Sepsis [Unknown]

NARRATIVE: CASE EVENT DATE: 2018
